FAERS Safety Report 8313771-9 (Version None)
Quarter: 2012Q2

REPORT INFORMATION
  Report Type: 
  Country: None (occurrence: None)
  Receive Date: 20120426
  Receipt Date: 20110808
  Transmission Date: 20120825
  Serious: Yes (Other)
  Sender: FDA-Public Use
  Company Number: US-TEVA-US021246

PATIENT
  Sex: Female
  Weight: 57 kg

DRUGS (7)
  1. BACLOFEN [Concomitant]
     Route: 065
  2. VALIUM [Concomitant]
     Route: 065
  3. FLOMAX [Concomitant]
     Route: 065
  4. ZANAFLEX [Concomitant]
     Route: 065
  5. PROVIGIL [Suspect]
     Dosage: 300 MILLIGRAM;
     Route: 048
     Dates: start: 20070801
  6. PROVIGIL [Suspect]
     Indication: FATIGUE
     Dosage: 200 MILLIGRAM;
     Route: 048
     Dates: start: 20060301, end: 20070801
  7. LEXAPRO [Concomitant]
     Route: 065

REACTIONS (2)
  - PSYCHOTIC DISORDER [None]
  - PARANOIA [None]
